FAERS Safety Report 22393140 (Version 3)
Quarter: 2023Q2

REPORT INFORMATION
  Report Type: Other
  Country: US (occurrence: US)
  Receive Date: 20230601
  Receipt Date: 20230609
  Transmission Date: 20230721
  Serious: Yes (Hospitalization, Other)
  Sender: FDA-Public Use
  Company Number: None

PATIENT

DRUGS (16)
  1. RAVICTI [Suspect]
     Active Substance: GLYCEROL PHENYLBUTYRATE
     Indication: Seizure
     Dosage: 38 G
     Dates: start: 202211
  2. EPIDIOLEX [Suspect]
     Active Substance: CANNABIDIOL
     Indication: Partial seizures
     Dosage: 2.5 ML BID (100 MG/ML)
     Dates: start: 2022
  3. EPIDIOLEX [Suspect]
     Active Substance: CANNABIDIOL
     Indication: Focal dyscognitive seizures
  4. EPIDIOLEX [Suspect]
     Active Substance: CANNABIDIOL
     Indication: Amino acid metabolism disorder
  5. EPIDIOLEX [Suspect]
     Active Substance: CANNABIDIOL
     Indication: Lennox-Gastaut syndrome
  6. EPIDIOLEX [Suspect]
     Active Substance: CANNABIDIOL
     Indication: Epilepsy
  7. ZYRTEC-D [Concomitant]
     Active Substance: CETIRIZINE HYDROCHLORIDE\PSEUDOEPHEDRINE HYDROCHLORIDE
     Indication: Product used for unknown indication
     Dosage: 5 MG-120MG TABLET. SUSTAINED RELEASE 12H
  8. ZYRTEC-D [Concomitant]
     Active Substance: CETIRIZINE HYDROCHLORIDE\PSEUDOEPHEDRINE HYDROCHLORIDE
     Dosage: 5 MG-120MG TABLET. SUSTAINED RELEASE 12H
  9. REGLAN [Concomitant]
     Active Substance: METOCLOPRAMIDE HYDROCHLORIDE
     Indication: Product used for unknown indication
  10. ONDANSETRON HYDROCHLORIDE [Concomitant]
     Active Substance: ONDANSETRON HYDROCHLORIDE
  11. PHENOBARBITAL [Concomitant]
     Active Substance: PHENOBARBITAL
  12. VIMPAT [Concomitant]
     Active Substance: LACOSAMIDE
  13. CYPROHEPTADINE HYDROCHLORIDE [Concomitant]
     Active Substance: CYPROHEPTADINE HYDROCHLORIDE
  14. TRILEPTAL [Concomitant]
     Active Substance: OXCARBAZEPINE
  15. FYCOMPA [Concomitant]
     Active Substance: PERAMPANEL
  16. NEURONTIN [Concomitant]
     Active Substance: GABAPENTIN

REACTIONS (11)
  - Vomiting [Unknown]
  - Flatulence [Unknown]
  - Cough [Unknown]
  - Abdominal discomfort [Unknown]
  - Epilepsy [Unknown]
  - Aspiration [Unknown]
  - Seizure [Recovering/Resolving]
  - Weight abnormal [Unknown]
  - Sedation [Unknown]
  - Regurgitation [Unknown]
  - Off label use [Unknown]

NARRATIVE: CASE EVENT DATE: 20230129
